FAERS Safety Report 7833301-5 (Version None)
Quarter: 2011Q4

REPORT INFORMATION
  Report Type: 
  Country: None (occurrence: None)
  Receive Date: 20111024
  Receipt Date: 20111013
  Transmission Date: 20120403
  Serious: No
  Sender: FDA-Public Use
  Company Number: CA-ELI_LILLY_AND_COMPANY-CA201108007236

PATIENT
  Age: 55 Year
  Sex: Female

DRUGS (19)
  1. ESOMEPRAZOLE SODIUM [Concomitant]
     Dosage: UNK, UNKNOWN
     Route: 065
  2. RAMIPRIL [Concomitant]
     Dosage: UNK, UNKNOWN
     Route: 065
  3. VIT D [Concomitant]
     Dosage: UNK, UNKNOWN
     Route: 065
  4. GABAPENTIN [Concomitant]
     Dosage: UNK, UNKNOWN
     Route: 065
  5. MONTELUKAST SODIUM [Concomitant]
     Dosage: UNK, UNKNOWN
     Route: 065
  6. VENTOLIN                                /SCH/ [Concomitant]
     Dosage: UNK, UNKNOWN
     Route: 065
  7. ALVESCO [Concomitant]
     Dosage: UNK, UNKNOWN
     Route: 065
  8. SPIRIVA [Concomitant]
     Dosage: UNK, UNKNOWN
     Route: 065
  9. TRAZODONE HYDROCHLORIDE [Concomitant]
     Dosage: UNK, UNKNOWN
     Route: 065
  10. FORTEO [Suspect]
     Dosage: 20 UG, QD
     Route: 058
  11. FLONASE [Concomitant]
     Dosage: UNK, UNKNOWN
     Route: 065
  12. PREDNISONE [Concomitant]
     Dosage: UNK, UNKNOWN
     Route: 065
  13. SENNA [Concomitant]
     Dosage: UNK, UNKNOWN
     Route: 065
  14. FORTEO [Suspect]
     Indication: OSTEOPOROSIS
     Dosage: 20 UG, QD
     Route: 058
     Dates: start: 20100818
  15. METFORMIN HCL [Concomitant]
     Dosage: UNK, UNKNOWN
  16. CALCIUM CARBONATE [Concomitant]
     Dosage: UNK, UNKNOWN
     Route: 065
  17. BUPROPION HCL [Concomitant]
     Dosage: UNK, UNKNOWN
     Route: 065
  18. HYDROMORPHONE HCL [Concomitant]
     Dosage: UNK, UNKNOWN
     Route: 065
  19. OXEZE [Concomitant]
     Dosage: UNK, UNKNOWN
     Route: 065

REACTIONS (2)
  - CHRONIC OBSTRUCTIVE PULMONARY DISEASE [None]
  - DYSPHONIA [None]
